FAERS Safety Report 5596915-1 (Version None)
Quarter: 2007Q4

REPORT INFORMATION
  Report Type: 
  Country: None (occurrence: None)
  Receive Date: 20071220
  Receipt Date: 20061215
  Transmission Date: 20080405
  Serious: No
  Sender: FDA-Public Use
  Company Number: 06H-163-0311600-00

PATIENT
  Age: 62 Year
  Sex: Male
  Weight: 96.6162 kg

DRUGS (2)
  1. DOBUTAMINE HCL [Suspect]
     Indication: STRESS ECHOCARDIOGRAM
     Dosage: 10 MCG/KG/MIN, INTRAVENOUS 20 MCG/KG/MIN, INTRAVENOUS
     Route: 042
     Dates: start: 20061214, end: 20061214
  2. DOBUTAMINE HCL [Suspect]
     Indication: STRESS ECHOCARDIOGRAM
     Dosage: 10 MCG/KG/MIN, INTRAVENOUS 20 MCG/KG/MIN, INTRAVENOUS
     Route: 042
     Dates: start: 20061214

REACTIONS (2)
  - HEADACHE [None]
  - HYPERTENSION [None]
